FAERS Safety Report 20708515 (Version 2)
Quarter: 2022Q2

REPORT INFORMATION
  Report Type: Spontaneous
  Country: RO (occurrence: None)
  Receive Date: 20220414
  Receipt Date: 20220422
  Transmission Date: 20220721
  Serious: Yes (Hospitalization, Other)
  Sender: FDA-Public Use
  Company Number: RO-ROCHE-3067946

PATIENT
  Age: 72 Year
  Sex: Female

DRUGS (1)
  1. OBINUTUZUMAB [Suspect]
     Active Substance: OBINUTUZUMAB
     Indication: Product used for unknown indication
     Route: 042

REACTIONS (9)
  - Sepsis [Unknown]
  - Neutropenia [Unknown]
  - Thrombocytopenia [Unknown]
  - Leukocytosis [Unknown]
  - Hyperhidrosis [Unknown]
  - Weight decreased [Unknown]
  - Anaemia [Unknown]
  - Off label use [Unknown]
  - COVID-19 [Unknown]

NARRATIVE: CASE EVENT DATE: 20220201
